FAERS Safety Report 22994721 (Version 12)
Quarter: 2025Q4

REPORT INFORMATION
  Report Type: Report from Study
  Country: US (occurrence: US)
  Receive Date: 20230927
  Receipt Date: 20251218
  Transmission Date: 20260117
  Serious: Yes (Hospitalization, Other)
  Sender: TAKEDA
  Company Number: US-TAKEDA-US202015989

PATIENT
  Age: 21 Year
  Sex: Female

DRUGS (3)
  1. HUMAN IMMUNOGLOBULIN G [Suspect]
     Active Substance: HUMAN IMMUNOGLOBULIN G
     Indication: Primary immunodeficiency syndrome
     Dosage: UNK
  2. HUMAN IMMUNOGLOBULIN G [Suspect]
     Active Substance: HUMAN IMMUNOGLOBULIN G
     Dosage: 30 GRAM, QOD
  3. HUMAN IMMUNOGLOBULIN G [Suspect]
     Active Substance: HUMAN IMMUNOGLOBULIN G
     Dosage: UNK

REACTIONS (24)
  - Infection [Not Recovered/Not Resolved]
  - Pericardial cyst [Unknown]
  - Autoimmune disorder [Unknown]
  - Viral infection [Unknown]
  - Cyst [Unknown]
  - Urinary tract infection [Unknown]
  - Procedural pain [Unknown]
  - Post procedural complication [Unknown]
  - T-lymphocyte count increased [Unknown]
  - Thyroid hormones increased [Unknown]
  - Myocardial fibrosis [Unknown]
  - Bladder dysfunction [Unknown]
  - Incorrect drug administration rate [Unknown]
  - Blood cholesterol increased [Unknown]
  - Oropharyngeal pain [Unknown]
  - Burning sensation [Unknown]
  - Pain [Unknown]
  - Tachycardia [Unknown]
  - Migraine [Unknown]
  - Chills [Unknown]
  - Fatigue [Unknown]
  - Catheter site scar [Unknown]
  - Product dose omission issue [Unknown]
  - Incorrect dose administered [Unknown]

NARRATIVE: CASE EVENT DATE: 20200508
